FAERS Safety Report 5044867-5 (Version None)
Quarter: 2006Q2

REPORT INFORMATION
  Report Type: 
  Country: None (occurrence: None)
  Receive Date: 20060601
  Receipt Date: 20060207
  Transmission Date: 20061013
  Serious: No
  Sender: FDA-Public Use
  Company Number: 2006-BP-01494BP

PATIENT
  Age: 83 Year
  Sex: Female

DRUGS (10)
  1. SPIRIVA [Suspect]
     Indication: CHRONIC OBSTRUCTIVE PULMONARY DISEASE
     Dosage: 18 MCG (18 MCG),IH
  2. SPIRIVA [Suspect]
  3. ARICEPT [Suspect]
     Indication: DEMENTIA ALZHEIMER'S TYPE
     Dates: start: 20060207, end: 20060207
  4. ALBUTEROL SPIROS [Concomitant]
  5. HYZAAR [Concomitant]
  6. PLAVIX [Concomitant]
  7. EVISTA [Concomitant]
  8. METOPRALOL [Concomitant]
  9. AMBIEN [Concomitant]
  10. ASPIRIN [Concomitant]

REACTIONS (3)
  - CONSTIPATION [None]
  - DIARRHOEA [None]
  - NAUSEA [None]
